FAERS Safety Report 12986412 (Version 2)
Quarter: 2017Q2

REPORT INFORMATION
  Report Type: Spontaneous
  Country: JP (occurrence: JP)
  Receive Date: 20161130
  Receipt Date: 20170504
  Transmission Date: 20170830
  Serious: Yes (Death, Other)
  Sender: FDA-Public Use
  Company Number: JP-DEPOMED, INC.-JP-2016DEP012851

PATIENT

DRUGS (1)
  1. TAPENTADOL HYDROCHLORIDE [Suspect]
     Active Substance: TAPENTADOL HYDROCHLORIDE
     Indication: ANALGESIC THERAPY
     Dosage: UNK
     Route: 048

REACTIONS (8)
  - Death [Fatal]
  - Delirium [Unknown]
  - Condition aggravated [Unknown]
  - Nausea [Unknown]
  - Dysphagia [Unknown]
  - Headache [Unknown]
  - Somnolence [Unknown]
  - Constipation [Unknown]
